FAERS Safety Report 9607519 (Version 1)
Quarter: 2013Q4

REPORT INFORMATION
  Report Type: Spontaneous
  Country: US (occurrence: US)
  Receive Date: 20131009
  Receipt Date: 20131009
  Transmission Date: 20140711
  Serious: Yes (Life-Threatening, Hospitalization)
  Sender: FDA-Public Use
  Company Number: US-SA-2013SA097178

PATIENT
  Age: 89 Year
  Sex: Female

DRUGS (10)
  1. LANTUS SOLOSTAR [Suspect]
     Indication: TYPE 2 DIABETES MELLITUS
     Dosage: DOSE: 8 UNITS IN MORNING AND 7 UNITS IN EVENING
     Route: 058
  2. INSULIN LISPRO [Suspect]
  3. KEPPRA [Suspect]
  4. GLUCOPHAGE [Suspect]
  5. DEPAKOTE [Suspect]
  6. NOVOLOG [Suspect]
  7. HUMALOG [Suspect]
  8. LEVEMIR [Suspect]
  9. AMARYL [Concomitant]
  10. SOLOSTAR [Concomitant]
     Indication: TYPE 2 DIABETES MELLITUS

REACTIONS (17)
  - Sepsis [Unknown]
  - Urinary tract infection [Unknown]
  - Adverse event [Unknown]
  - Convulsion [Unknown]
  - Lethargy [Unknown]
  - Memory impairment [Unknown]
  - Disorientation [Unknown]
  - Enuresis [Unknown]
  - Decreased appetite [Unknown]
  - Drug hypersensitivity [Unknown]
  - Pruritus [Recovering/Resolving]
  - Burning sensation [Not Recovered/Not Resolved]
  - Rash [Not Recovered/Not Resolved]
  - Skin exfoliation [Recovered/Resolved]
  - Blood glucose increased [Unknown]
  - Blood glucose fluctuation [Unknown]
  - Walking aid user [Unknown]
